FAERS Safety Report 5698154-2 (Version None)
Quarter: 2008Q2

REPORT INFORMATION
  Report Type: 
  Country: None (occurrence: None)
  Receive Date: 20080403
  Receipt Date: 20080314
  Transmission Date: 20081010
  Serious: No
  Sender: FDA-Public Use
  Company Number: 001#1#2008-00171

PATIENT
  Age: 53 Year
  Sex: Male

DRUGS (1)
  1. NEUPRO [Suspect]
     Dosage: 4 MG/24H (4 MG/24H 1 IN 1 DAYS (S)), TRANSDERMAL
     Route: 062

REACTIONS (2)
  - DRUG EFFECT DECREASED [None]
  - PHARMACEUTICAL PRODUCT COMPLAINT [None]
